FAERS Safety Report 7230763-1 (Version None)
Quarter: 2011Q1

REPORT INFORMATION
  Report Type: 
  Country: None (occurrence: None)
  Receive Date: 20110118
  Receipt Date: 20110107
  Transmission Date: 20110831
  Serious: Yes (Other)
  Sender: FDA-Public Use
  Company Number: PHHY2011DE01562

PATIENT
  Sex: Male

DRUGS (4)
  1. CONCOR [Concomitant]
     Dosage: 5 MG, UNK
  2. RASILEZ HCT [Suspect]
     Indication: HYPERTENSION
     Dosage: 150/25 MG
     Dates: start: 20100101
  3. ALDACTONE [Concomitant]
  4. ASPIRIN [Concomitant]

REACTIONS (3)
  - HYPOAESTHESIA [None]
  - PERIPHERAL COLDNESS [None]
  - VASOSPASM [None]
